FAERS Safety Report 9101080 (Version 1)
Quarter: 2013Q1

REPORT INFORMATION
  Report Type: Spontaneous
  Country: GB (occurrence: GB)
  Receive Date: 20130218
  Receipt Date: 20130218
  Transmission Date: 20140127
  Serious: Yes (Disabling, Other)
  Sender: FDA-Public Use
  Company Number: GB-TEVA-385544ISR

PATIENT
  Age: 51 Year
  Sex: Female

DRUGS (7)
  1. TRIMETHOPRIM [Suspect]
     Indication: URINARY TRACT INFECTION
     Route: 048
     Dates: start: 20121128, end: 20121230
  2. METHOTREXATE [Interacting]
  3. ASPIRIN [Concomitant]
     Indication: ANTICOAGULANT THERAPY
  4. LYMECYCLINE [Concomitant]
  5. FOLIC ACID [Concomitant]
  6. CLENIL MODULITE [Concomitant]
  7. SALBUTAMOL [Concomitant]

REACTIONS (11)
  - Platelet count decreased [Unknown]
  - Headache [Recovered/Resolved]
  - Contusion [Recovered/Resolved]
  - Vision blurred [Recovered/Resolved]
  - Drug interaction [Unknown]
  - Drug prescribing error [Unknown]
  - Influenza like illness [Recovering/Resolving]
  - Asthenia [Recovering/Resolving]
  - Fatigue [Recovering/Resolving]
  - Myalgia [Recovering/Resolving]
  - Malaise [Unknown]
